FAERS Safety Report 11449070 (Version 2)
Quarter: 2015Q3

REPORT INFORMATION
  Report Type: Spontaneous
  Country: US (occurrence: None)
  Receive Date: 20150902
  Receipt Date: 20150909
  Transmission Date: 20151125
  Serious: Yes (Other)
  Sender: FDA-Public Use
  Company Number: ADR-2015-01593

PATIENT
  Age: 57 Year
  Sex: Female

DRUGS (2)
  1. BACLOFEN. [Suspect]
     Active Substance: BACLOFEN
     Indication: PAIN
     Dosage: 94.2867 MCG/DAY
  2. FENTANYL. [Suspect]
     Active Substance: FENTANYL
     Dosage: 5657.2 MCG/DAY

REACTIONS (3)
  - Nuclear magnetic resonance imaging abnormal [None]
  - Infusion site mass [None]
  - Muscular weakness [None]
